FAERS Safety Report 13271641 (Version 2)
Quarter: 2017Q1

REPORT INFORMATION
  Report Type: Report from Study
  Country: JP (occurrence: JP)
  Receive Date: 20170227
  Receipt Date: 20170315
  Transmission Date: 20170428
  Serious: Yes (Death, Hospitalization, Other)
  Sender: FDA-Public Use
  Company Number: JP-ROCHE-1899082

PATIENT
  Age: 74 Year
  Sex: Female
  Weight: 45 kg

DRUGS (4)
  1. ELPLAT [Suspect]
     Active Substance: OXALIPLATIN
     Indication: RECTAL CANCER
     Route: 041
     Dates: start: 20170113, end: 20170203
  2. CAPECITABINE. [Suspect]
     Active Substance: CAPECITABINE
     Indication: RECTAL CANCER
     Dosage: TREATMENT LINE: 1ST LINE, TREATMENT CYCLE OF THIS MEDICINE NUMBER: 2, ?2 WEEKS ADMINSITRATION FOLLOW
     Route: 048
     Dates: start: 20170113, end: 20170217
  3. OLMETEC [Concomitant]
     Active Substance: OLMESARTAN MEDOXOMIL
     Dosage: DOSAGE IS UNCERTAIN.
     Route: 065
     Dates: end: 20170217
  4. MUCOSTA [Concomitant]
     Active Substance: REBAMIPIDE
     Dosage: DOSAGE IS UNCERTAIN.
     Route: 065
     Dates: start: 20170127, end: 20170217

REACTIONS (11)
  - Stomatitis [Not Recovered/Not Resolved]
  - Hyperglycaemia [Unknown]
  - Gastrointestinal injury [Unknown]
  - Disseminated intravascular coagulation [Fatal]
  - Multiple organ dysfunction syndrome [Fatal]
  - Sepsis [Unknown]
  - Diarrhoea [Not Recovered/Not Resolved]
  - Dehydration [Recovered/Resolved]
  - Respiratory acidosis [Unknown]
  - Acidosis [Not Recovered/Not Resolved]
  - Enteritis infectious [Unknown]

NARRATIVE: CASE EVENT DATE: 201702
